FAERS Safety Report 13670286 (Version 1)
Quarter: 2017Q2

REPORT INFORMATION
  Report Type: Spontaneous
  Country: FR (occurrence: FR)
  Receive Date: 20170620
  Receipt Date: 20170620
  Transmission Date: 20170830
  Serious: Yes (Death, Other)
  Sender: FDA-Public Use
  Company Number: PHHY2017FR085482

PATIENT
  Age: 56 Year
  Sex: Male

DRUGS (1)
  1. PREDNISOLONE. [Suspect]
     Active Substance: PREDNISOLONE
     Indication: INTERSTITIAL LUNG DISEASE
     Dosage: 60 MG, QD
     Route: 065

REACTIONS (6)
  - Condition aggravated [Unknown]
  - General physical health deterioration [Unknown]
  - Dyspnoea [Unknown]
  - Lymphopenia [Unknown]
  - Pneumocystis jirovecii pneumonia [Fatal]
  - Respiratory distress [Fatal]
